FAERS Safety Report 6622775-3 (Version None)
Quarter: 2010Q1

REPORT INFORMATION
  Report Type: 
  Country: None (occurrence: None)
  Receive Date: 20100310
  Receipt Date: 20100301
  Transmission Date: 20100710
  Serious: Yes (Hospitalization, Other)
  Sender: FDA-Public Use
  Company Number: JP-RANBAXY-2009US-29680

PATIENT

DRUGS (5)
  1. CLARIS [Suspect]
     Indication: RESPIRATORY TRACT INFECTION
     Dosage: 200 MG, 2 DOSES QD
     Route: 065
  2. SANTAK [Suspect]
     Indication: GASTRIC ULCER
     Dosage: UNK MG, UNK
     Route: 065
  3. MUCODAINE [Suspect]
     Indication: BRONCHITIS CHRONIC
     Route: 065
  4. MUCONORBAN [Suspect]
     Indication: BRONCHITIS CHRONIC
     Route: 065
  5. TEPRENONE [Suspect]
     Indication: BRONCHITIS CHRONIC
     Route: 065

REACTIONS (3)
  - DRUG INTERACTION [None]
  - NEUROLEPTIC MALIGNANT SYNDROME [None]
  - PARKINSONISM [None]
